FAERS Safety Report 5653401-8 (Version None)
Quarter: 2008Q1

REPORT INFORMATION
  Report Type: 
  Country: None (occurrence: None)
  Receive Date: 20080306
  Receipt Date: 20080228
  Transmission Date: 20080703
  Serious: Yes (Hospitalization, Disabling, Other)
  Sender: FDA-Public Use
  Company Number: A0712476A

PATIENT
  Age: 62 Year
  Sex: Female

DRUGS (7)
  1. LAMICTAL [Suspect]
     Indication: HYPOMANIA
     Route: 065
  2. LIPITOR [Concomitant]
     Route: 048
     Dates: start: 20070101, end: 20070101
  3. CLONAZEPAM [Concomitant]
  4. DIOVAN [Concomitant]
  5. LIPITOR [Concomitant]
  6. SYNTHROID [Concomitant]
  7. TRILEPTAL [Concomitant]

REACTIONS (15)
  - ATAXIA [None]
  - BALANCE DISORDER [None]
  - BURNING SENSATION [None]
  - DIZZINESS [None]
  - FALL [None]
  - GAIT DISTURBANCE [None]
  - HIP FRACTURE [None]
  - JOINT DISLOCATION [None]
  - NEUROPATHY PERIPHERAL [None]
  - PARAESTHESIA [None]
  - PATELLA FRACTURE [None]
  - PERONEAL NERVE PALSY [None]
  - SOFT TISSUE INJURY [None]
  - TENDON INJURY [None]
  - TENDONITIS [None]
